FAERS Safety Report 19700485 (Version 1)
Quarter: 2021Q3

REPORT INFORMATION
  Report Type: Spontaneous
  Country: CN (occurrence: CN)
  Receive Date: 20210813
  Receipt Date: 20210813
  Transmission Date: 20211014
  Serious: Yes (Hospitalization, Other)
  Sender: FDA-Public Use
  Company Number: CN-ASTRAZENECA-2021A673270

PATIENT
  Age: 52 Year
  Sex: Female
  Weight: 55 kg

DRUGS (16)
  1. PEMETREXED. [Concomitant]
     Active Substance: PEMETREXED
     Indication: LUNG ADENOCARCINOMA
     Dosage: 0.8G 21D/COURSE OF TREATMENT (Q 21D), 7 COURSE OF TREATMENT
     Route: 065
     Dates: start: 201902, end: 201907
  2. NEDAPLATIN [Concomitant]
     Active Substance: NEDAPLATIN
     Indication: METASTASES TO CENTRAL NERVOUS SYSTEM
     Dosage: 140 MG 21D/COURSE OF TREATMENT (Q 21D), 7 COURSE OF TREATMENT
     Route: 065
     Dates: start: 201902, end: 201907
  3. COMPOUND TAXUS CAPSULE [Suspect]
     Active Substance: HERBALS
     Indication: LUNG ADENOCARCINOMA
     Dosage: RE?INTRODUCED DOSE
     Route: 048
  4. GEFITINIB. [Suspect]
     Active Substance: GEFITINIB
     Indication: METASTASES TO LYMPH NODES
     Route: 048
     Dates: start: 201902, end: 20191008
  5. GEFITINIB. [Suspect]
     Active Substance: GEFITINIB
     Indication: METASTASES TO CENTRAL NERVOUS SYSTEM
     Route: 048
     Dates: start: 201902, end: 20191008
  6. GEFITINIB. [Suspect]
     Active Substance: GEFITINIB
     Indication: LUNG ADENOCARCINOMA
     Route: 048
     Dates: start: 20191023, end: 20191123
  7. GEFITINIB. [Suspect]
     Active Substance: GEFITINIB
     Indication: METASTASES TO CENTRAL NERVOUS SYSTEM
     Route: 048
     Dates: start: 20191023, end: 20191123
  8. PEMETREXED. [Concomitant]
     Active Substance: PEMETREXED
     Indication: METASTASES TO CENTRAL NERVOUS SYSTEM
     Dosage: 0.8G 21D/COURSE OF TREATMENT (Q 21D), 7 COURSE OF TREATMENT
     Route: 065
     Dates: start: 201902, end: 201907
  9. GEFITINIB. [Suspect]
     Active Substance: GEFITINIB
     Indication: LUNG ADENOCARCINOMA
     Route: 048
     Dates: start: 201902, end: 20191008
  10. GEFITINIB. [Suspect]
     Active Substance: GEFITINIB
     Indication: METASTASES TO LYMPH NODES
     Route: 048
     Dates: start: 20191023, end: 20191123
  11. COMPOUND TAXUS CAPSULE [Suspect]
     Active Substance: HERBALS
     Indication: METASTASES TO CENTRAL NERVOUS SYSTEM
     Dosage: RE?INTRODUCED DOSE
     Route: 048
  12. COMPOUND TAXUS CAPSULE [Suspect]
     Active Substance: HERBALS
     Indication: METASTASES TO LYMPH NODES
     Dosage: RE?INTRODUCED DOSE
     Route: 048
  13. NEDAPLATIN [Concomitant]
     Active Substance: NEDAPLATIN
     Indication: LUNG ADENOCARCINOMA
     Dosage: 140 MG 21D/COURSE OF TREATMENT (Q 21D), 7 COURSE OF TREATMENT
     Route: 065
     Dates: start: 201902, end: 201907
  14. COMPOUND TAXUS CAPSULE [Suspect]
     Active Substance: HERBALS
     Indication: METASTASES TO CENTRAL NERVOUS SYSTEM
     Route: 048
     Dates: start: 201902, end: 20191008
  15. COMPOUND TAXUS CAPSULE [Suspect]
     Active Substance: HERBALS
     Indication: LUNG ADENOCARCINOMA
     Route: 048
     Dates: start: 201902, end: 20191008
  16. COMPOUND TAXUS CAPSULE [Suspect]
     Active Substance: HERBALS
     Indication: METASTASES TO LYMPH NODES
     Route: 048
     Dates: start: 201902, end: 20191008

REACTIONS (3)
  - Cholecystitis acute [Recovered/Resolved]
  - Liver injury [Recovered/Resolved]
  - Transaminases increased [Recovered/Resolved]

NARRATIVE: CASE EVENT DATE: 20190930
